FAERS Safety Report 23631731 (Version 2)
Quarter: 2024Q1

REPORT INFORMATION
  Report Type: Spontaneous
  Country: JP (occurrence: JP)
  Receive Date: 20240314
  Receipt Date: 20240325
  Transmission Date: 20240410
  Serious: Yes (Other)
  Sender: FDA-Public Use
  Company Number: JP-Eisai-202210395_LEN-EC_P_1

PATIENT
  Age: 64 Year
  Sex: Female

DRUGS (4)
  1. LENVATINIB [Suspect]
     Active Substance: LENVATINIB
     Indication: Endometrial cancer
     Route: 048
  2. LENVATINIB [Suspect]
     Active Substance: LENVATINIB
     Dosage: 5 DAYS ON AND 2 DAYS OFF
     Route: 048
  3. LENVATINIB [Suspect]
     Active Substance: LENVATINIB
     Dosage: 5 DAYS ON AND 2 DAYS OFF
     Route: 048
  4. PEMBROLIZUMAB [Concomitant]
     Active Substance: PEMBROLIZUMAB
     Indication: Endometrial cancer
     Dosage: DOSE AND FREQUENCY UNKNOWN
     Route: 041

REACTIONS (4)
  - Immune thrombocytopenia [Unknown]
  - Hypertension [Unknown]
  - Proteinuria [Unknown]
  - Hypothyroidism [Unknown]
